FAERS Safety Report 25256277 (Version 2)
Quarter: 2025Q3

REPORT INFORMATION
  Report Type: Report from Study
  Country: US (occurrence: US)
  Receive Date: 20250430
  Receipt Date: 20250806
  Transmission Date: 20251021
  Serious: Yes (Other)
  Sender: NOVARTIS
  Company Number: US-002147023-NVSC2024US175867

PATIENT
  Age: 38 Year
  Sex: Female

DRUGS (2)
  1. LEQVIO [Suspect]
     Active Substance: INCLISIRAN SODIUM
     Indication: Hyperlipidaemia
     Route: 042
     Dates: start: 20240829
  2. LEQVIO [Suspect]
     Active Substance: INCLISIRAN SODIUM
     Dosage: 1 DOSAGE FORM, Q3MO
     Route: 058
     Dates: start: 20240830

REACTIONS (17)
  - Pain in extremity [Recovering/Resolving]
  - Swelling [Recovered/Resolved]
  - Injection site discolouration [Recovering/Resolving]
  - Dyspnoea [Unknown]
  - Injury associated with device [Unknown]
  - Feeling abnormal [Unknown]
  - Injection site erythema [Recovered/Resolved]
  - Hypersensitivity [Unknown]
  - Peripheral swelling [Recovered/Resolved]
  - Vomiting [Unknown]
  - Migraine [Unknown]
  - Palpitations [Unknown]
  - Nausea [Unknown]
  - Cough [Unknown]
  - Tremor [Unknown]
  - Dizziness [Unknown]
  - Therapeutic product effect variable [Unknown]

NARRATIVE: CASE EVENT DATE: 20240829
